FAERS Safety Report 5062834-2 (Version None)
Quarter: 2006Q3

REPORT INFORMATION
  Report Type: 
  Country: None (occurrence: None)
  Receive Date: 20060724
  Receipt Date: 20060713
  Transmission Date: 20061208
  Serious: Yes (Hospitalization, Other)
  Sender: FDA-Public Use
  Company Number: 2006079239

PATIENT
  Age: 63 Year
  Sex: Male
  Weight: 100 kg

DRUGS (12)
  1. ATORVASTATIN CALCIUM [Suspect]
     Indication: DYSLIPIDAEMIA
     Dosage: 10 MG (10 MG, 1 IN 1 D), ORAL
     Route: 048
     Dates: start: 20040101, end: 20060501
  2. NSAID'S (NSAID'S) [Suspect]
     Indication: EXOSTOSIS
     Dates: start: 20051101
  3. NAPROXEN [Suspect]
     Indication: EXOSTOSIS
  4. DICLOFENAC SODIUM [Suspect]
     Indication: EXOSTOSIS
  5. CELEBREX [Suspect]
     Indication: EXOSTOSIS
  6. COLCHICINE [Concomitant]
  7. ALLOPURINOL [Concomitant]
  8. MANIDIPINE [Concomitant]
  9. ALL OTHER THERAPEUTIC PRODUCTS [Concomitant]
  10. METFORMIN [Concomitant]
  11. DIURETICS [Concomitant]
  12. CARDIAC THERAPY [Concomitant]

REACTIONS (15)
  - AGRANULOCYTOSIS [None]
  - BLOOD CREATINE PHOSPHOKINASE INCREASED [None]
  - BLOOD GLUCOSE ABNORMAL [None]
  - BLOOD TRIGLYCERIDES INCREASED [None]
  - BONE MARROW FAILURE [None]
  - DIARRHOEA HAEMORRHAGIC [None]
  - DYSPNOEA [None]
  - FAECES DISCOLOURED [None]
  - FEELING COLD [None]
  - MALAISE [None]
  - MUCOUS STOOLS [None]
  - PLATELET COUNT DECREASED [None]
  - RECTAL FISSURE [None]
  - SYNCOPE [None]
  - TREMOR [None]
